FAERS Safety Report 5016077-9 (Version None)
Quarter: 2006Q2

REPORT INFORMATION
  Report Type: 
  Country: None (occurrence: None)
  Receive Date: 20060531
  Receipt Date: 20060531
  Transmission Date: 20061013
  Serious: No
  Sender: FDA-Public Use
  Company Number: None

PATIENT
  Sex: Male
  Weight: 68.0396 kg

DRUGS (4)
  1. LEVAQUIN [Suspect]
     Indication: BRONCHITIS
     Dosage: 750 MG 1X DAY PO
     Route: 048
     Dates: start: 20041202, end: 20041211
  2. LEVAQUIN [Suspect]
     Indication: SINUSITIS
     Dosage: 750 MG 1X DAY PO
     Route: 048
     Dates: start: 20041202, end: 20041211
  3. LEVAQUIN [Suspect]
     Indication: BRONCHITIS
     Dosage: 750 MG 1X DAY PO
     Route: 048
     Dates: start: 20041218, end: 20041227
  4. LEVAQUIN [Suspect]
     Indication: SINUSITIS
     Dosage: 750 MG 1X DAY PO
     Route: 048
     Dates: start: 20041218, end: 20041227

REACTIONS (50)
  - ABDOMINAL PAIN [None]
  - ALOPECIA [None]
  - AMNESIA [None]
  - ANXIETY [None]
  - ARTHRALGIA [None]
  - ARTHROPATHY [None]
  - BACK DISORDER [None]
  - BACK PAIN [None]
  - DEPERSONALISATION [None]
  - DEPRESSION [None]
  - DISTURBANCE IN ATTENTION [None]
  - DIZZINESS [None]
  - DRY EYE [None]
  - EAR DISCOMFORT [None]
  - EXERCISE TOLERANCE DECREASED [None]
  - FATIGUE [None]
  - FEELING ABNORMAL [None]
  - FEELING OF BODY TEMPERATURE CHANGE [None]
  - FRACTURE DISPLACEMENT [None]
  - GASTROINTESTINAL DISORDER [None]
  - HALLUCINATION [None]
  - HYPERHIDROSIS [None]
  - INSOMNIA [None]
  - JOINT RANGE OF MOTION DECREASED [None]
  - MENTAL DISORDER [None]
  - MOOD ALTERED [None]
  - MOVEMENT DISORDER [None]
  - MUSCLE CONTRACTURE [None]
  - MUSCLE SPASMS [None]
  - MUSCULAR WEAKNESS [None]
  - MUSCULOSKELETAL STIFFNESS [None]
  - NAUSEA [None]
  - NERVOUS SYSTEM DISORDER [None]
  - OCULAR HYPERAEMIA [None]
  - PAIN IN EXTREMITY [None]
  - PALPITATIONS [None]
  - PANIC ATTACK [None]
  - PARAESTHESIA [None]
  - PERIPHERAL COLDNESS [None]
  - PLANTAR FASCIITIS [None]
  - SHOULDER PAIN [None]
  - SPEECH DISORDER [None]
  - TACHYCARDIA [None]
  - TEMPERATURE INTOLERANCE [None]
  - TENDONITIS [None]
  - THINKING ABNORMAL [None]
  - TINNITUS [None]
  - TREMOR [None]
  - VISUAL DISTURBANCE [None]
  - WEIGHT DECREASED [None]
